FAERS Safety Report 4616780-6 (Version None)
Quarter: 2005Q1

REPORT INFORMATION
  Report Type: 
  Country: None (occurrence: None)
  Receive Date: 20050321
  Receipt Date: 20050307
  Transmission Date: 20050727
  Serious: Yes (Death, Hospitalization)
  Sender: FDA-Public Use
  Company Number: 174941

PATIENT
  Age: 41 Year
  Sex: Male

DRUGS (1)
  1. AVONEX [Suspect]
     Indication: PROGRESSIVE MULTIPLE SCLEROSIS

REACTIONS (29)
  - ABDOMINAL HAEMATOMA [None]
  - ABDOMINAL MASS [None]
  - ACTIVATED PARTIAL THROMBOPLASTIN TIME PROLONGED [None]
  - ANAEMIA [None]
  - BLOOD BILIRUBIN INCREASED [None]
  - BLOOD BILIRUBIN UNCONJUGATED INCREASED [None]
  - BLOOD CREATININE INCREASED [None]
  - BLOOD UREA INCREASED [None]
  - COAGULATION FACTOR IX LEVEL INCREASED [None]
  - COAGULATION FACTOR VII LEVEL INCREASED [None]
  - COAGULATION FACTOR VIII LEVEL DECREASED [None]
  - COMPLEMENT FACTOR C4 DECREASED [None]
  - ECCHYMOSIS [None]
  - FACTOR VIII INHIBITION [None]
  - FALL [None]
  - FIBRIN DEGRADATION PRODUCTS INCREASED [None]
  - HAEMATOMA [None]
  - HAEMATURIA [None]
  - HAEMODYNAMIC INSTABILITY [None]
  - HAEMORRHAGE [None]
  - HEPATIC ENZYME INCREASED [None]
  - LEUKOCYTOSIS [None]
  - PROTHROMBIN TIME PROLONGED [None]
  - PULMONARY HAEMORRHAGE [None]
  - PUNCTURE SITE HAEMORRHAGE [None]
  - RENAL HAEMORRHAGE [None]
  - RETROPERITONEAL HAEMATOMA [None]
  - THERAPY NON-RESPONDER [None]
  - VON WILLEBRAND'S FACTOR MULTIMERS ABNORMAL [None]
